FAERS Safety Report 7715879-5 (Version None)
Quarter: 2011Q3

REPORT INFORMATION
  Report Type: 
  Country: None (occurrence: None)
  Receive Date: 20110829
  Receipt Date: 20110829
  Transmission Date: 20111222
  Serious: Yes (Life-Threatening)
  Sender: FDA-Public Use
  Company Number: None

PATIENT
  Age: 43 Year
  Sex: Female
  Weight: 79.5 kg

DRUGS (1)
  1. INTEGRILIN [Suspect]

REACTIONS (1)
  - PLATELET COUNT DECREASED [None]
